APPROVED DRUG PRODUCT: VANCOCIN HYDROCHLORIDE
Active Ingredient: VANCOMYCIN HYDROCHLORIDE
Strength: EQ 125MG BASE
Dosage Form/Route: CAPSULE;ORAL
Application: N050606 | Product #001 | TE Code: AB
Applicant: ANI PHARMACEUTICALS INC
Approved: Apr 15, 1986 | RLD: Yes | RS: No | Type: RX